FAERS Safety Report 6142333-7 (Version None)
Quarter: 2009Q2

REPORT INFORMATION
  Report Type: 
  Country: None (occurrence: None)
  Receive Date: 20090403
  Receipt Date: 20090326
  Transmission Date: 20091009
  Serious: Yes (Other)
  Sender: FDA-Public Use
  Company Number: US-JNJFOC-20090307168

PATIENT
  Age: 58 Year
  Sex: Female
  Weight: 28.58 kg

DRUGS (4)
  1. TYLENOL (CAPLET) [Suspect]
     Route: 048
  2. TYLENOL (CAPLET) [Suspect]
     Indication: ARTHRALGIA
     Route: 048
  3. EXTRA STRENGTH TYLENOL [Concomitant]
     Indication: ARTHRALGIA
  4. ZOFRAN [Concomitant]
     Indication: NAUSEA

REACTIONS (5)
  - COUGH [None]
  - DYSPHAGIA [None]
  - DYSPNOEA [None]
  - FOREIGN BODY TRAUMA [None]
  - OROPHARYNGEAL PAIN [None]
